FAERS Safety Report 11570383 (Version 1)
Quarter: 2015Q3

REPORT INFORMATION
  Report Type: Spontaneous
  Country: GB (occurrence: GB)
  Receive Date: 20150929
  Receipt Date: 20150929
  Transmission Date: 20151125
  Serious: Yes (Hospitalization)
  Sender: FDA-Public Use
  Company Number: GB-TEVA-596503ACC

PATIENT
  Age: 83 Year

DRUGS (6)
  1. TRAMADOL. [Suspect]
     Active Substance: TRAMADOL
     Indication: PAIN
     Dosage: 400 MILLIGRAM DAILY;
  2. OMEPRAZOLE. [Concomitant]
     Active Substance: OMEPRAZOLE
     Dosage: 20 MILLIGRAM DAILY;
  3. PARACETAMOL [Concomitant]
     Active Substance: ACETAMINOPHEN
     Dosage: TAKE 1 OR 2 UP TO 4 TIMES A DAY- MAXIMUM 8 IN 24 HOURS
  4. ADALAT CC [Concomitant]
     Active Substance: NIFEDIPINE
     Dosage: 1 DOSAGE FORMS DAILY;
  5. ADCAL-D3 [Concomitant]
     Active Substance: CALCIUM CARBONATE\CHOLECALCIFEROL
     Dosage: 2 DOSAGE FORMS DAILY; 750MG/200UNIT CAPLETS; DAILY DOSE: 2 DOSAGE FORMS
  6. WARFARIN [Concomitant]
     Active Substance: WARFARIN
     Dosage: AS PER INTERNATIONAL NORMALISED RATIO, 4MG FRIDAY, 3MG FOR THE REST OF THE WEEK

REACTIONS (3)
  - Faecaloma [Recovered/Resolved]
  - Abdominal pain [Recovered/Resolved]
  - Constipation [Recovered/Resolved]
